FAERS Safety Report 11916390 (Version 1)
Quarter: 2016Q1

REPORT INFORMATION
  Report Type: Spontaneous
  Country: US (occurrence: US)
  Receive Date: 20160114
  Receipt Date: 20160114
  Transmission Date: 20160526
  Serious: Yes (Other)
  Sender: FDA-Public Use
  Company Number: US-ASTRAZENECA-2016SE02094

PATIENT
  Age: 26877 Day
  Sex: Female
  Weight: 70.3 kg

DRUGS (17)
  1. FEMARA [Suspect]
     Active Substance: LETROZOLE
     Indication: BREAST CANCER
     Route: 048
  2. CALCIUM D3 [Concomitant]
     Active Substance: CALCIUM\CHOLECALCIFEROL
     Route: 048
  3. OXYCODONE [Concomitant]
     Active Substance: OXYCODONE
     Indication: BREAKTHROUGH PAIN
     Dosage: 5-325MG TABLET BY MOUTH EVERY 4 HOURS
     Route: 048
  4. FIBERCON [Concomitant]
     Active Substance: CALCIUM POLYCARBOPHIL
     Indication: DIARRHOEA
  5. LIDODERM [Concomitant]
     Active Substance: LIDOCAINE
     Indication: PAIN
  6. ALIGN [Concomitant]
     Active Substance: BIFIDOBACTERIUM LONGUM SUBSP. INFANTIS
     Indication: ABDOMINAL DISCOMFORT
  7. ARIMIDEX [Suspect]
     Active Substance: ANASTROZOLE
     Route: 048
     Dates: start: 2012, end: 2012
  8. HYDROCODONE [Concomitant]
     Active Substance: HYDROCODONE
     Indication: PAIN
  9. LOMOTIL [Concomitant]
     Active Substance: ATROPINE SULFATE\DIPHENOXYLATE HYDROCHLORIDE
     Indication: DIARRHOEA
     Dosage: TAKES ONLY WHEN HAVE DIARRHEA
  10. SYNTHROID [Concomitant]
     Active Substance: LEVOTHYROXINE SODIUM
     Indication: THYROID DISORDER
     Route: 048
  11. TRAZODONE [Concomitant]
     Active Substance: TRAZODONE HYDROCHLORIDE
     Indication: PAIN
     Dosage: 50MG 1-2 TABLETS BY MOUTH AT NIGHT
     Route: 048
  12. CRANBERRY. [Concomitant]
     Active Substance: CRANBERRY
     Indication: URINE ABNORMALITY
  13. IBRANCE [Suspect]
     Active Substance: PALBOCICLIB
     Indication: BREAST CANCER
     Dosage: 21 DAYS, 7 DAYS OFF
     Route: 048
     Dates: start: 2015
  14. BUTRANS [Concomitant]
     Active Substance: BUPRENORPHINE
     Indication: PAIN
     Route: 062
  15. TIZANIDINE. [Concomitant]
     Active Substance: TIZANIDINE
     Indication: MUSCLE SPASMS
     Route: 048
  16. FIBERCON [Concomitant]
     Active Substance: CALCIUM POLYCARBOPHIL
     Indication: DIARRHOEA
  17. MUCINEX [Concomitant]
     Active Substance: GUAIFENESIN
     Indication: NASOPHARYNGITIS

REACTIONS (10)
  - Dyspnoea [Unknown]
  - Breast cancer recurrent [Unknown]
  - Dysphagia [Unknown]
  - Alopecia [Not Recovered/Not Resolved]
  - Swollen tongue [Unknown]
  - Decreased appetite [Not Recovered/Not Resolved]
  - Asthenia [Not Recovered/Not Resolved]
  - Weight increased [Unknown]
  - Vitamin B12 decreased [Unknown]
  - Dysphonia [Unknown]

NARRATIVE: CASE EVENT DATE: 201201
